FAERS Safety Report 8791490 (Version 1)
Quarter: 2012Q4

REPORT INFORMATION
  Report Type: Spontaneous
  Country: IT (occurrence: None)
  Receive Date: 20120912
  Receipt Date: 20120912
  Transmission Date: 20130627
  Serious: Yes (Hospitalization, Other)
  Sender: FDA-Public Use
  Company Number: 2012MA010695

PATIENT
  Age: 80 Year
  Sex: Female

DRUGS (11)
  1. TICLOPIDINE HYDROCHLORIDE [Suspect]
     Indication: CAROTID ARTERY STENOSIS
  2. ATENOLOL [Concomitant]
  3. CHLORTHALIDONE [Concomitant]
  4. AMLODIPINE [Concomitant]
  5. METFORMIN [Concomitant]
  6. GLICAZIDE [Concomitant]
  7. SIMVASTATIN [Concomitant]
  8. TIMOLOL [Concomitant]
  9. PAROXETINE [Concomitant]
  10. LORAZEPAM [Concomitant]
  11. ASA [Concomitant]

REACTIONS (1)
  - Hypertensive crisis [None]
